FAERS Safety Report 7249575-8 (Version None)
Quarter: 2011Q1

REPORT INFORMATION
  Report Type: 
  Country: None (occurrence: None)
  Receive Date: 20110128
  Receipt Date: 20101215
  Transmission Date: 20110831
  Serious: Yes (Hospitalization, Other)
  Sender: FDA-Public Use
  Company Number: US-BAYER-201022349NA

PATIENT
  Sex: Female
  Weight: 63.492 kg

DRUGS (11)
  1. DEPAKOTE [Concomitant]
     Indication: BIPOLAR DISORDER
     Dosage: 10 MG, UNK
     Dates: start: 20060321
  2. PERCOCET [Concomitant]
     Indication: PAIN
  3. TRAMADOL HCL [Concomitant]
     Indication: PAIN
     Dosage: 50 MG, UNK
     Dates: start: 20060317
  4. CEFTIN [Concomitant]
     Dosage: 250 MG, UNK
     Route: 048
     Dates: start: 20060401
  5. YASMIN [Suspect]
     Indication: ORAL CONTRACEPTION
     Dosage: UNK UNK, QD
     Route: 048
     Dates: start: 20060418, end: 20070418
  6. CEFUROXIME AXETIL [Concomitant]
     Indication: BACTERIAL INFECTION
     Dosage: 250 MG, UNK
     Dates: start: 20060327
  7. LORTAB [Concomitant]
  8. YAZ [Suspect]
     Indication: ORAL CONTRACEPTION
     Dosage: UNK UNK, QD
     Route: 048
  9. LEXAPRO [Concomitant]
     Dosage: 10 MG, UNK
  10. PHENERGAN [Concomitant]
     Indication: NAUSEA
     Dosage: 25 MG, UNK
     Dates: start: 20060321
  11. MOTRIN [Concomitant]
     Dosage: UNK
     Dates: start: 20060201

REACTIONS (14)
  - CHOLECYSTITIS CHRONIC [None]
  - ABDOMINAL PAIN [None]
  - DEPRESSION [None]
  - CHOLECYSTECTOMY [None]
  - HEPATOMEGALY [None]
  - CHOLELITHIASIS [None]
  - DYSPEPSIA [None]
  - DIARRHOEA [None]
  - NAUSEA [None]
  - BILIARY COLIC [None]
  - ABDOMINAL DISTENSION [None]
  - CONSTIPATION [None]
  - ANXIETY [None]
  - HEPATIC STEATOSIS [None]
